FAERS Safety Report 7083839-6 (Version None)
Quarter: 2010Q4

REPORT INFORMATION
  Report Type: 
  Country: None (occurrence: None)
  Receive Date: 20101104
  Receipt Date: 20101101
  Transmission Date: 20110411
  Serious: Yes (Hospitalization)
  Sender: FDA-Public Use
  Company Number: KR-BRISTOL-MYERS SQUIBB COMPANY-15324254

PATIENT
  Age: 29 Year
  Sex: Male

DRUGS (3)
  1. ARIPIPRAZOLE [Suspect]
     Indication: SCHIZOPHRENIA
     Dosage: 20MG 28SEP10- INCREASED TO 25MG ON 04OCT10
     Dates: start: 20100906
  2. RIVOTRIL [Concomitant]
     Indication: PROPHYLAXIS
     Dosage: 0.5MG 30JUL08-05OCT10 1MG 06OCT10-ONG
     Route: 048
     Dates: start: 20080730
  3. INVEGA [Concomitant]
     Indication: SCHIZOPHRENIA
     Dosage: 9MG 28JUL-27SEP10 DECREASED 6MG 28SEP-03OCT10 3MG BID 04SEP-04OCT10, 05OCT-06OCT10
     Route: 048
     Dates: start: 20100728, end: 20101006

REACTIONS (1)
  - PSYCHOTIC DISORDER [None]
